FAERS Safety Report 10083427 (Version 1)
Quarter: 2014Q2

REPORT INFORMATION
  Report Type: Spontaneous
  Country: US (occurrence: None)
  Receive Date: 20140416
  Receipt Date: 20140416
  Transmission Date: 20141212
  Serious: Yes (Other)
  Sender: FDA-Public Use
  Company Number: None

PATIENT
  Age: 50 Year
  Sex: Male
  Weight: 136.08 kg

DRUGS (1)
  1. NASACORT [Suspect]
     Indication: MULTIPLE ALLERGIES
     Dosage: 1 SPRAY; ONCE DAILY
     Route: 055

REACTIONS (1)
  - Product label issue [None]
